FAERS Safety Report 7411887-2 (Version None)
Quarter: 2011Q2

REPORT INFORMATION
  Report Type: 
  Country: None (occurrence: None)
  Receive Date: 20110405
  Receipt Date: 20110330
  Transmission Date: 20111010
  Serious: Yes (Hospitalization)
  Sender: FDA-Public Use
  Company Number: CIP11000799

PATIENT
  Age: 67 Year
  Sex: Male

DRUGS (5)
  1. ALDACTONE [Concomitant]
  2. ACTONEL [Suspect]
     Indication: OSTEITIS DEFORMANS
     Dosage: 17.5 MG ONCE WEEKLY, ORAL
     Route: 048
     Dates: start: 20110225, end: 20110322
  3. LASIX [Concomitant]
  4. LOXONIN /00890701/ (LOXOPROFEN) [Concomitant]
  5. LEVOFLOXACIN [Concomitant]

REACTIONS (2)
  - RENAL IMPAIRMENT [None]
  - BLOOD CREATININE INCREASED [None]
